FAERS Safety Report 6061460-6 (Version None)
Quarter: 2009Q1

REPORT INFORMATION
  Report Type: 
  Country: None (occurrence: None)
  Receive Date: 20090129
  Receipt Date: 20090129
  Transmission Date: 20090719
  Serious: Yes (Other)
  Sender: FDA-Public Use
  Company Number: None

PATIENT
  Age: 47 Year
  Sex: Male
  Weight: 83.9154 kg

DRUGS (1)
  1. ZOLOFT [Suspect]

REACTIONS (3)
  - EJACULATION FAILURE [None]
  - MALE ORGASMIC DISORDER [None]
  - PENIS DISORDER [None]
